FAERS Safety Report 13494385 (Version 19)
Quarter: 2018Q1

REPORT INFORMATION
  Report Type: Report from Study
  Country: JP (occurrence: JP)
  Receive Date: 20170428
  Receipt Date: 20180323
  Transmission Date: 20180508
  Serious: Yes (Hospitalization, Other)
  Sender: FDA-Public Use
  Company Number: JP-AMGEN-JPNCT2016100599

PATIENT
  Age: 71 Year
  Sex: Male
  Weight: 51.9 kg

DRUGS (36)
  1. PANITUMUMAB [Suspect]
     Active Substance: PANITUMUMAB
     Dosage: 220 MG, Q2WK
     Route: 041
     Dates: start: 20160831, end: 20160928
  2. FLUOROURACIL. [Suspect]
     Active Substance: FLUOROURACIL
     Dosage: 550 MG, Q2WK
     Route: 040
     Dates: start: 20160831, end: 20160928
  3. FLUOROURACIL. [Suspect]
     Active Substance: FLUOROURACIL
     Dosage: 550 MG, Q2WK
     Route: 040
     Dates: start: 20161026, end: 20161228
  4. FLUOROURACIL. [Suspect]
     Active Substance: FLUOROURACIL
     Dosage: 1600 MG/M2, Q2WK
     Route: 041
     Dates: start: 20170322, end: 20170322
  5. POTASSIUM GLUCONATE [Concomitant]
     Active Substance: POTASSIUM GLUCONATE
     Indication: ELECTROLYTE SUBSTITUTION THERAPY
     Dosage: 9 G, TID
     Route: 048
     Dates: start: 20161228
  6. ESOMEPRAZOLE MAGNESIUM. [Concomitant]
     Active Substance: ESOMEPRAZOLE MAGNESIUM
     Indication: PROPHYLAXIS AGAINST GASTROINTESTINAL ULCER
     Dosage: 20 MG, QD
     Route: 048
     Dates: start: 20170608, end: 20170614
  7. SULFAMETHOXAZOLE W/TRIMETHOPRIM [Concomitant]
     Active Substance: SULFAMETHOXAZOLE\TRIMETHOPRIM
     Indication: INFECTION PROPHYLAXIS
     Dosage: 1 DF, QD
     Route: 048
     Dates: start: 20170608, end: 20170614
  8. FLUOROURACIL. [Suspect]
     Active Substance: FLUOROURACIL
     Dosage: 2000 MG/M2, Q2WK
     Route: 041
     Dates: start: 20170208, end: 20170222
  9. FLUOROURACIL. [Suspect]
     Active Substance: FLUOROURACIL
     Dosage: UNK
     Route: 041
     Dates: start: 20170629, end: 20170629
  10. CALCIUM LEVOFOLINATE [Concomitant]
     Active Substance: LEVOLEUCOVORIN CALCIUM
     Indication: COLON CANCER
     Dosage: 275 MG, Q2WEEKS
     Route: 041
     Dates: start: 20160608, end: 20160803
  11. CALCIUM LEVOFOLINATE [Concomitant]
     Active Substance: LEVOLEUCOVORIN CALCIUM
     Dosage: UNK UNK, Q2WEEKS
     Route: 041
     Dates: start: 20170208, end: 20170222
  12. OXALIPLATIN. [Suspect]
     Active Substance: OXALIPLATIN
     Dosage: 80 MG, Q2WEEKS
     Route: 041
     Dates: start: 20170208, end: 20170222
  13. CANDESARTAN CILEXETIL. [Concomitant]
     Active Substance: CANDESARTAN CILEXETIL
     Indication: HYPERTENSION
     Dosage: 8 MG, QD
     Route: 048
     Dates: start: 20161013, end: 20170614
  14. MAGNESIUM OXIDE. [Concomitant]
     Active Substance: MAGNESIUM OXIDE
     Indication: CONSTIPATION PROPHYLAXIS
     Dosage: 330 MG, TID
     Route: 048
     Dates: start: 20170315, end: 20170614
  15. PANITUMUMAB [Suspect]
     Active Substance: PANITUMUMAB
     Dosage: 220 MG, Q2WK
     Route: 041
     Dates: start: 20170208, end: 20170222
  16. PANITUMUMAB [Suspect]
     Active Substance: PANITUMUMAB
     Dosage: 220 MG, Q2WK
     Route: 041
     Dates: start: 20170322, end: 20170322
  17. FLUOROURACIL. [Suspect]
     Active Substance: FLUOROURACIL
     Dosage: 3500 MG, Q2WEEKS
     Route: 041
     Dates: start: 20160831, end: 20160928
  18. FLUOROURACIL. [Suspect]
     Active Substance: FLUOROURACIL
     Dosage: 3500 MG, Q2WEEKS
     Route: 041
     Dates: start: 20161026, end: 20161228
  19. OXALIPLATIN. [Suspect]
     Active Substance: OXALIPLATIN
     Dosage: 80 MG, Q2WEEKS
     Route: 041
     Dates: start: 20170322, end: 20170322
  20. FLUOROURACIL. [Suspect]
     Active Substance: FLUOROURACIL
     Dosage: 3500 MG, Q2WK
     Route: 041
     Dates: start: 20160608, end: 20160803
  21. FLUOROURACIL. [Suspect]
     Active Substance: FLUOROURACIL
     Dosage: 320 MG/M2, Q2WK
     Route: 040
     Dates: start: 20170208, end: 20170222
  22. FLUOROURACIL. [Suspect]
     Active Substance: FLUOROURACIL
     Dosage: 320 MG/M2, Q2WK
     Route: 040
     Dates: start: 20170322, end: 20170322
  23. CALCIUM LEVOFOLINATE [Concomitant]
     Active Substance: LEVOLEUCOVORIN CALCIUM
     Dosage: UNK UNK, Q2WEEKS
     Route: 041
     Dates: start: 20161026, end: 20161228
  24. PANITUMUMAB [Suspect]
     Active Substance: PANITUMUMAB
     Indication: COLON CANCER
     Dosage: 280 MG, Q2WK
     Route: 041
     Dates: start: 20160608, end: 20160803
  25. PANITUMUMAB [Suspect]
     Active Substance: PANITUMUMAB
     Dosage: 220 MG, Q2WK
     Route: 041
     Dates: start: 20161026, end: 20161109
  26. OXALIPLATIN. [Suspect]
     Active Substance: OXALIPLATIN
     Dosage: 100 MG, Q2WEEKS
     Route: 041
     Dates: start: 20161026, end: 20161228
  27. FLUOROURACIL. [Suspect]
     Active Substance: FLUOROURACIL
     Indication: COLON CANCER
     Dosage: 550 MG, Q2WK
     Route: 040
     Dates: start: 20160608, end: 20160803
  28. FLUOROURACIL. [Suspect]
     Active Substance: FLUOROURACIL
     Dosage: UNK
     Route: 041
     Dates: start: 20170629, end: 20170629
  29. CALCIUM LEVOFOLINATE [Concomitant]
     Active Substance: LEVOLEUCOVORIN CALCIUM
     Dosage: 275 MG, Q2WEEKS
     Route: 041
     Dates: start: 20160831, end: 20160928
  30. CALCIUM LEVOFOLINATE [Concomitant]
     Active Substance: LEVOLEUCOVORIN CALCIUM
     Dosage: UNK UNK, Q2WEEKS
     Route: 041
     Dates: start: 20170322, end: 20170322
  31. CALCIUM LEVOFOLINATE [Concomitant]
     Active Substance: LEVOLEUCOVORIN CALCIUM
     Dosage: UNK
     Route: 041
     Dates: start: 20170629, end: 20170629
  32. VALPROATE SODIUM. [Concomitant]
     Active Substance: VALPROATE SODIUM
     Indication: EPILEPSY
     Dosage: 600 MG, BID
     Route: 048
     Dates: end: 20170614
  33. ALENDRONATE SODIUM. [Concomitant]
     Active Substance: ALENDRONATE SODIUM
     Indication: OSTEOPOROSIS PROPHYLAXIS
     Dosage: 35 MG, 1/WEEK
     Route: 048
     Dates: start: 20170424, end: 20170614
  34. PANITUMUMAB [Suspect]
     Active Substance: PANITUMUMAB
     Dosage: 220 MG, Q2WK
     Route: 041
     Dates: start: 20161214, end: 20161228
  35. OXALIPLATIN. [Suspect]
     Active Substance: OXALIPLATIN
     Indication: COLON CANCER
     Dosage: 120 MG, Q2WEEKS
     Route: 041
     Dates: start: 20160608, end: 20160803
  36. OXALIPLATIN. [Suspect]
     Active Substance: OXALIPLATIN
     Dosage: 120 MG, Q2WEEKS
     Route: 041
     Dates: start: 20160831, end: 20160928

REACTIONS (12)
  - Acute kidney injury [Recovered/Resolved]
  - Acute kidney injury [Recovered/Resolved]
  - Neutrophil count decreased [Recovered/Resolved]
  - Dehydration [Recovered/Resolved]
  - Dermatitis acneiform [Unknown]
  - Pneumonia [Recovered/Resolved]
  - Dehydration [Recovered/Resolved]
  - Ileal stenosis [Recovered/Resolved]
  - Dehydration [Unknown]
  - Decreased appetite [Recovered/Resolved]
  - Paronychia [Recovered/Resolved]
  - Stomatitis [Recovered/Resolved]

NARRATIVE: CASE EVENT DATE: 20170111
